FAERS Safety Report 6884556-5 (Version None)
Quarter: 2010Q3

REPORT INFORMATION
  Report Type: 
  Country: None (occurrence: None)
  Receive Date: 20100729
  Receipt Date: 20070712
  Transmission Date: 20110219
  Serious: Yes (Hospitalization)
  Sender: FDA-Public Use
  Company Number: US-PFIZER INC-2007058421

PATIENT
  Sex: Male
  Weight: 90.7 kg

DRUGS (4)
  1. CELEBREX [Suspect]
     Indication: PAIN IN EXTREMITY
     Dates: start: 20010101, end: 20050301
  2. ASPIRIN [Concomitant]
  3. ACETAMINOPHEN [Concomitant]
  4. VIOXX [Concomitant]

REACTIONS (2)
  - MYOCARDIAL INFARCTION [None]
  - PAIN [None]
